FAERS Safety Report 9807680 (Version 2)
Quarter: 2014Q1

REPORT INFORMATION
  Report Type: Spontaneous
  Country: US (occurrence: US)
  Receive Date: 20140110
  Receipt Date: 20140120
  Transmission Date: 20141002
  Serious: Yes (Other)
  Sender: FDA-Public Use
  Company Number: US-009507513-1401USA001148

PATIENT
  Age: 47 Year
  Sex: Female

DRUGS (1)
  1. WIGRAINE [Suspect]
     Indication: MIGRAINE
     Dosage: 10 YEARS OF USE
     Route: 048

REACTIONS (5)
  - Mitral valve replacement [Unknown]
  - Aortic valve replacement [Unknown]
  - Coronary artery bypass [Unknown]
  - Aortic valve incompetence [Unknown]
  - Mitral valve disease mixed [Unknown]
